FAERS Safety Report 9175290 (Version 1)
Quarter: 2013Q1

REPORT INFORMATION
  Report Type: Spontaneous
  Country: DE (occurrence: DE)
  Receive Date: 20130320
  Receipt Date: 20130320
  Transmission Date: 20140127
  Serious: Yes (Other)
  Sender: FDA-Public Use
  Company Number: DE-ROCHE-1203016

PATIENT
  Sex: Female

DRUGS (4)
  1. XOLAIR [Suspect]
     Indication: ASTHMA
     Route: 058
     Dates: start: 20121109
  2. VIANI [Concomitant]
  3. SINGULAIR [Concomitant]
  4. SPIRIVA [Concomitant]

REACTIONS (1)
  - Influenza like illness [Recovered/Resolved]
